FAERS Safety Report 9360677 (Version 2)
Quarter: 2013Q2

REPORT INFORMATION
  Report Type: Spontaneous
  Country: US (occurrence: US)
  Receive Date: 20130621
  Receipt Date: 20130624
  Transmission Date: 20140414
  Serious: No
  Sender: FDA-Public Use
  Company Number: US-BAYER-2013-075653

PATIENT
  Age: 35 Year
  Sex: Female

DRUGS (1)
  1. MIRENA [Suspect]
     Indication: CONTRACEPTION
     Dosage: 20 MCG/24HR, CONT
     Route: 015
     Dates: start: 20130614, end: 20130614

REACTIONS (4)
  - Uterine spasm [None]
  - Complication of device insertion [Recovered/Resolved]
  - Device difficult to use [None]
  - Post procedural discomfort [Recovered/Resolved]
